FAERS Safety Report 12203478 (Version 7)
Quarter: 2019Q3

REPORT INFORMATION
  Report Type: Spontaneous
  Country: FR (occurrence: FR)
  Receive Date: 20160323
  Receipt Date: 20190806
  Transmission Date: 20191004
  Serious: Yes (Death, Hospitalization, Other)
  Sender: FDA-Public Use
  Company Number: PHHY2016FR022759

PATIENT
  Age: 39 Year
  Sex: Female
  Weight: 70 kg

DRUGS (15)
  1. KEPPRA [Suspect]
     Active Substance: LEVETIRACETAM
     Dosage: UNK
     Route: 042
     Dates: start: 20160125
  2. PROPOFOL. [Suspect]
     Active Substance: PROPOFOL
     Indication: STATUS EPILEPTICUS
     Dosage: UNK
     Route: 042
     Dates: start: 20160117
  3. RIVOTRIL [Suspect]
     Active Substance: CLONAZEPAM
     Dosage: 4 MG, QD
     Route: 048
     Dates: start: 20160119
  4. DILANTIN (PHENYTOIN SODIUM) [Suspect]
     Active Substance: PHENYTOIN SODIUM
     Indication: STATUS EPILEPTICUS
     Dosage: 700 MG, UNK
     Route: 042
     Dates: start: 20160117, end: 20160207
  5. VIMPAT [Suspect]
     Active Substance: LACOSAMIDE
     Dosage: UNK
     Route: 065
  6. AUGMENTIN [Concomitant]
     Active Substance: AMOXICILLIN\CLAVULANATE POTASSIUM
     Indication: AGRANULOCYTOSIS
  7. PHENOBARBITAL. [Suspect]
     Active Substance: PHENOBARBITAL
     Dosage: UNK
     Route: 042
     Dates: start: 20160205
  8. TRILEPTAL [Suspect]
     Active Substance: OXCARBAZEPINE
     Indication: STATUS EPILEPTICUS
     Dosage: (ADMINISTERED VIA NASOGASTRIC PROBE AND DISCONTINUED DUE TO ONSET OF LIVER DAMAGE (UNAVAILABLE )UNK
     Route: 048
     Dates: start: 20160118, end: 20160204
  9. PHENOBARBITAL. [Suspect]
     Active Substance: PHENOBARBITAL
     Indication: STATUS EPILEPTICUS
     Dosage: UNK
     Route: 048
     Dates: start: 20160117, end: 20160119
  10. VIMPAT [Suspect]
     Active Substance: LACOSAMIDE
     Indication: STATUS EPILEPTICUS
     Dosage: UNK(ADMINISTERED VIA NASOGASTRIC PROBE)
     Route: 048
     Dates: start: 20160118, end: 20160130
  11. MAGNESIUM SULFATE. [Concomitant]
     Active Substance: MAGNESIUM SULFATE
     Indication: PRODUCT USED FOR UNKNOWN INDICATION
     Dosage: UNK
     Route: 065
  12. KEPPRA [Suspect]
     Active Substance: LEVETIRACETAM
     Indication: STATUS EPILEPTICUS
     Dosage: 1 G, TID
     Route: 042
     Dates: start: 20160117, end: 20160119
  13. RIVOTRIL [Suspect]
     Active Substance: CLONAZEPAM
     Indication: STATUS EPILEPTICUS
     Dosage: 2 MG, QD
     Route: 048
     Dates: start: 20160118, end: 20160118
  14. PHENOBARBITAL. [Suspect]
     Active Substance: PHENOBARBITAL
     Dosage: FOR 24 HOURS
     Route: 048
     Dates: start: 20160130
  15. AUGMENTIN [Concomitant]
     Active Substance: AMOXICILLIN\CLAVULANATE POTASSIUM
     Indication: PRODUCT USED FOR UNKNOWN INDICATION
     Dosage: UNK FOR 8 DAYS
     Route: 065
     Dates: start: 20160209

REACTIONS (13)
  - Liver injury [Unknown]
  - Off label use [Unknown]
  - Pre-eclampsia [Fatal]
  - Septic shock [Fatal]
  - Maternal exposure during pregnancy [Unknown]
  - Blood alkaline phosphatase increased [Unknown]
  - Agranulocytosis [Fatal]
  - Multiple organ dysfunction syndrome [Fatal]
  - Lung disorder [Fatal]
  - Gamma-glutamyltransferase increased [Unknown]
  - Transaminases increased [Unknown]
  - Pyrexia [Fatal]
  - Premature delivery [Unknown]

NARRATIVE: CASE EVENT DATE: 20160117
